FAERS Safety Report 6419974-2 (Version None)
Quarter: 2009Q4

REPORT INFORMATION
  Report Type: 
  Country: None (occurrence: None)
  Receive Date: 20091029
  Receipt Date: 20091020
  Transmission Date: 20100525
  Serious: Yes (Hospitalization)
  Sender: FDA-Public Use
  Company Number: DE-PFIZER INC-2009199507

PATIENT
  Age: 77 Year

DRUGS (7)
  1. BLINDED *NO SUBJECT DRUG [Suspect]
     Indication: RENAL CANCER
     Dosage: 37.5 MG, 1X/DAY
     Route: 048
     Dates: start: 20081125
  2. BLINDED *PLACEBO [Suspect]
     Indication: RENAL CANCER
     Dosage: 37.5 MG, 1X/DAY
     Route: 048
     Dates: start: 20081125
  3. BLINDED SUNITINIB MALATE [Suspect]
     Indication: RENAL CANCER
     Dosage: 37.5 MG, 1X/DAY
     Route: 048
     Dates: start: 20081125
  4. PANTOPRAZOLE SODIUM [Concomitant]
     Dosage: 40 MG, 1X/DAY
     Route: 048
     Dates: start: 20061213
  5. DIOVAN HCT [Concomitant]
     Dosage: UNK
     Route: 048
     Dates: start: 20060112
  6. UREA [Concomitant]
     Dosage: UNK
     Route: 062
     Dates: start: 20090107
  7. ALLOPURINOL [Concomitant]
     Dosage: UNK
     Route: 048
     Dates: start: 20070201

REACTIONS (3)
  - INCISIONAL HERNIA [None]
  - INGUINAL HERNIA [None]
  - PARONYCHIA [None]
